FAERS Safety Report 8313679-9 (Version None)
Quarter: 2012Q2

REPORT INFORMATION
  Report Type: 
  Country: None (occurrence: None)
  Receive Date: 20120426
  Receipt Date: 20120418
  Transmission Date: 20120825
  Serious: Yes (Hospitalization)
  Sender: FDA-Public Use
  Company Number: JP-ELI_LILLY_AND_COMPANY-JP201204000519

PATIENT
  Age: 63 Year
  Sex: Male

DRUGS (4)
  1. ALIMTA [Suspect]
     Dosage: UNK
     Route: 042
     Dates: start: 20120328
  2. CARBOPLATIN [Concomitant]
     Dosage: UNK
     Dates: start: 20120328
  3. VITAMIN B-12 [Concomitant]
  4. FOLIC ACID [Concomitant]

REACTIONS (1)
  - AMYLASE INCREASED [None]
